FAERS Safety Report 8158412-9 (Version None)
Quarter: 2012Q1

REPORT INFORMATION
  Report Type: 
  Country: None (occurrence: None)
  Receive Date: 20120223
  Receipt Date: 20120213
  Transmission Date: 20120608
  Serious: Yes (Death)
  Sender: FDA-Public Use
  Company Number: US-JNJFOC-20100806329

PATIENT
  Sex: Female
  Weight: 76.2 kg

DRUGS (6)
  1. REMICADE [Suspect]
     Indication: PSORIASIS
     Dosage: RECEIVED ONLY ONE DOSE
     Route: 042
     Dates: start: 20100316
  2. BENADRYL [Concomitant]
     Indication: PROPHYLAXIS
     Route: 065
     Dates: start: 20100316
  3. HYDROCHLOROTHIAZIDE [Concomitant]
     Indication: HYPERTENSION
  4. AMEVIVE [Concomitant]
     Indication: PSORIASIS
  5. ACETAMINOPHEN [Concomitant]
     Indication: PROPHYLAXIS
     Route: 065
     Dates: start: 20100316
  6. LISINOPRIL [Concomitant]
     Indication: HYPERTENSION

REACTIONS (1)
  - DEATH [None]
